FAERS Safety Report 6315210-6 (Version None)
Quarter: 2009Q3

REPORT INFORMATION
  Report Type: 
  Country: None (occurrence: None)
  Receive Date: 20090817
  Receipt Date: 20090804
  Transmission Date: 20100115
  Serious: Yes (Hospitalization, Disabling, Other)
  Sender: FDA-Public Use
  Company Number: 2009AP001938

PATIENT
  Age: 25 Year
  Sex: Female

DRUGS (6)
  1. LAMOTRIGINE [Suspect]
     Dosage: 25 MG; QD; 25 MG;QD
  2. AMOXICILLIN [Concomitant]
  3. PHENYTOIN [Concomitant]
  4. RABEPRAZOLE SODIUM [Concomitant]
  5. ETHINYL ESTRADIOL TAB [Concomitant]
  6. LEVONORGESTREL [Concomitant]

REACTIONS (11)
  - CONJUNCTIVITIS [None]
  - DYSAESTHESIA [None]
  - GAMMA-GLUTAMYLTRANSFERASE INCREASED [None]
  - IMPAIRED WORK ABILITY [None]
  - LEUKOPENIA [None]
  - MENINGITIS ASEPTIC [None]
  - SICCA SYNDROME [None]
  - SJOGREN'S SYNDROME [None]
  - TACHYCARDIA [None]
  - THROMBOCYTOPENIA [None]
  - VITH NERVE PARALYSIS [None]
